FAERS Safety Report 4369441-5 (Version None)
Quarter: 2004Q2

REPORT INFORMATION
  Report Type: 
  Country: None (occurrence: None)
  Receive Date: 20040527
  Receipt Date: 20040506
  Transmission Date: 20050107
  Serious: Yes (Hospitalization, Other)
  Sender: FDA-Public Use
  Company Number: USA031253701

PATIENT
  Age: 75 Year
  Sex: Female

DRUGS (14)
  1. FORTEO [Suspect]
     Indication: OSTEOPOROSIS
     Dates: start: 20030501
  2. CALCIUM [Concomitant]
  3. NEURONTIN [Concomitant]
  4. WELLBUTRIN [Concomitant]
  5. BEXTRA [Concomitant]
  6. LEXAPRO [Concomitant]
  7. ATENOLOL [Concomitant]
  8. LIPITOR [Concomitant]
  9. ASPIRIN [Concomitant]
  10. NITROGLYCERIN [Concomitant]
  11. TRICOR [Concomitant]
  12. REGLAN [Concomitant]
  13. XALATAN [Concomitant]
  14. TIMOLOL MALEATE [Concomitant]

REACTIONS (9)
  - ASTHENIA [None]
  - BLOOD CALCIUM DECREASED [None]
  - FALL [None]
  - FEELING ABNORMAL [None]
  - FRACTURE MALUNION [None]
  - HAND FRACTURE [None]
  - HYPOAESTHESIA [None]
  - PHARMACEUTICAL PRODUCT COMPLAINT [None]
  - UPPER LIMB FRACTURE [None]
